FAERS Safety Report 5958481-8 (Version None)
Quarter: 2008Q4

REPORT INFORMATION
  Report Type: 
  Country: None (occurrence: None)
  Receive Date: 20081119
  Receipt Date: 20081113
  Transmission Date: 20090506
  Serious: Yes (Hospitalization)
  Sender: FDA-Public Use
  Company Number: FR-ROCHE-597087

PATIENT
  Sex: Female
  Weight: 39 kg

DRUGS (7)
  1. ENFUVIRTIDE [Suspect]
     Route: 065
     Dates: start: 20081106
  2. KALETRA [Suspect]
     Route: 048
     Dates: start: 20081106
  3. TRUVADA [Suspect]
     Route: 048
     Dates: start: 20081106
  4. BACTRIM [Concomitant]
     Dates: start: 20081006
  5. ATARAX [Concomitant]
     Dates: start: 20081022
  6. PRIMPERAN [Concomitant]
     Dates: start: 20081110
  7. IMODIUM [Concomitant]
     Dates: start: 20081110

REACTIONS (1)
  - OESOPHAGEAL CANDIDIASIS [None]
